FAERS Safety Report 7319345-0 (Version None)
Quarter: 2011Q1

REPORT INFORMATION
  Report Type: 
  Country: None (occurrence: None)
  Receive Date: 20110228
  Receipt Date: 20100208
  Transmission Date: 20110831
  Serious: No
  Sender: FDA-Public Use
  Company Number: A0843504A

PATIENT
  Age: 59 Year
  Sex: Female

DRUGS (15)
  1. MORPHINE [Concomitant]
  2. VICODIN [Concomitant]
  3. SENNA [Concomitant]
  4. LAMOTRIGINE [Suspect]
     Indication: DEPRESSION
     Dosage: 37.5MG PER DAY
     Route: 048
     Dates: start: 20091101
  5. CYTOMEL [Concomitant]
  6. METAMUCIL-2 [Concomitant]
  7. MIRALAX [Concomitant]
  8. STOOL SOFTENER [Concomitant]
  9. LEVOTHYROXINE SODIUM [Concomitant]
  10. VALIUM [Concomitant]
  11. PROZAC [Concomitant]
  12. HYDROCHLOROTHIAZIDE [Concomitant]
  13. NORTRIPTYLINE [Concomitant]
  14. PRAVASTATIN [Concomitant]
  15. MILK OF MAGNESIUM [Concomitant]

REACTIONS (5)
  - CONSTIPATION [None]
  - SKIN EXFOLIATION [None]
  - EYE SWELLING [None]
  - BACK PAIN [None]
  - CLUMSINESS [None]
